FAERS Safety Report 21075044 (Version 1)
Quarter: 2022Q3

REPORT INFORMATION
  Report Type: Spontaneous
  Country: US (occurrence: US)
  Receive Date: 20220713
  Receipt Date: 20220713
  Transmission Date: 20221027
  Serious: Yes (Other)
  Sender: FDA-Public Use
  Company Number: US-PROCTER_AND_GAMBLE-PH22007180

PATIENT

DRUGS (2)
  1. VICKS VAPORUB [Suspect]
     Active Substance: CAMPHOR (SYNTHETIC)\EUCALYPTUS OIL\MENTHOL
     Indication: Pain in extremity
     Dosage: UNK
     Route: 061
  2. VICKS VAPORUB [Suspect]
     Active Substance: CAMPHOR (SYNTHETIC)\EUCALYPTUS OIL\MENTHOL
     Indication: Hypersensitivity

REACTIONS (3)
  - Coma [Unknown]
  - Product administered at inappropriate site [Unknown]
  - Drug effective for unapproved indication [Unknown]
